FAERS Safety Report 8397731 (Version 4)
Quarter: 2012Q4

REPORT INFORMATION
  Report Type: 
  Country: JP (occurrence: JP)
  Receive Date: 20120209
  Receipt Date: 20121112
  Transmission Date: 20130627
  Serious: Yes (Hospitalization, Other)
  Sender: FDA-Public Use
  Company Number: JP-JNJFOC-20120202430

PATIENT
  Age: 4 None
  Sex: Male

DRUGS (4)
  1. RISPERDAL [Suspect]
     Indication: SCHIZOPHRENIA, CATATONIC TYPE
     Route: 048
     Dates: start: 20100125
  2. RISPERDAL [Suspect]
     Indication: SCHIZOPHRENIA, CATATONIC TYPE
     Route: 048
     Dates: start: 20100220
  3. RISPERDAL [Suspect]
     Indication: SCHIZOPHRENIA, CATATONIC TYPE
     Route: 048
     Dates: start: 20100622, end: 20100803
  4. YOKUKAN-SAN [Concomitant]
     Indication: PSYCHIATRIC SYMPTOM
     Route: 048

REACTIONS (1)
  - Paroxysmal perceptual alteration [Recovered/Resolved]
